FAERS Safety Report 8874035 (Version 1)
Quarter: 2012Q4

REPORT INFORMATION
  Report Type: 
  Country: CA (occurrence: CA)
  Receive Date: 20121023
  Receipt Date: 20121023
  Transmission Date: 20130627
  Serious: Yes (Hospitalization)
  Sender: FDA-Public Use
  Company Number: PHHY2012CA092819

PATIENT
  Age: 89 Year
  Sex: Female

DRUGS (3)
  1. BISOPROLOL [Suspect]
     Indication: HYPERTENSION
     Dosage: 2.5 mg, QD
     Route: 048
     Dates: start: 20121003
  2. BISOPROLOL [Suspect]
     Dosage: 1.25 mg, QD
     Route: 048
  3. ACTONEL [Concomitant]
     Dosage: 35 mg, QW

REACTIONS (8)
  - Nasopharyngitis [Recovered/Resolved]
  - Pollakiuria [Recovered/Resolved]
  - Tinnitus [Recovered/Resolved]
  - Malaise [Recovered/Resolved]
  - Syncope [Recovered/Resolved]
  - Vomiting [Recovered/Resolved]
  - Dizziness [Recovered/Resolved]
  - Headache [Recovered/Resolved]
